FAERS Safety Report 15642466 (Version 1)
Quarter: 2018Q4

REPORT INFORMATION
  Report Type: Spontaneous
  Country: FR (occurrence: FR)
  Receive Date: 20181121
  Receipt Date: 20181121
  Transmission Date: 20190205
  Serious: Yes (Life-Threatening)
  Sender: FDA-Public Use
  Company Number: FR-009507513-1811FRA005492

PATIENT
  Age: 71 Year
  Sex: Female
  Weight: 51 kg

DRUGS (6)
  1. EMEND [Suspect]
     Active Substance: APREPITANT
     Indication: PROPHYLAXIS OF NAUSEA AND VOMITING
     Dosage: 125 MILLIGRAM, CYCLICAL
     Route: 048
     Dates: start: 20181017, end: 20181017
  2. DOXYCYCLINE. [Concomitant]
     Active Substance: DOXYCYCLINE
     Indication: ACNE
     Dosage: 100 MILLIGRAM, QD
     Route: 048
  3. METHYLPREDNISOLONE. [Suspect]
     Active Substance: METHYLPREDNISOLONE
     Indication: PROPHYLAXIS OF NAUSEA AND VOMITING
     Dosage: 60 MILLIGRAM, CYCLICAL
     Route: 041
     Dates: start: 20181017, end: 20181017
  4. ONDANSETRON ACCORD [Suspect]
     Active Substance: ONDANSETRON
     Indication: PROPHYLAXIS OF NAUSEA AND VOMITING
     Dosage: 8 MILLIGRAM, CYCLICAL
     Route: 041
     Dates: start: 20181017, end: 20181017
  5. OXALIPLATIN. [Suspect]
     Active Substance: OXALIPLATIN
     Indication: ADENOCARCINOMA OF COLON
     Dosage: 120 MILLIGRAM, CYCLICAL
     Route: 041
     Dates: start: 20181017, end: 20181017
  6. LEVOLEUCOVORIN CALCIUM. [Suspect]
     Active Substance: LEVOLEUCOVORIN CALCIUM
     Indication: CHEMOTHERAPY TOXICITY ATTENUATION
     Dosage: 284 MILLIGRAM, CYCLICAL
     Route: 041
     Dates: start: 20181017, end: 20181017

REACTIONS (4)
  - Oedema peripheral [Recovered/Resolved]
  - Oropharyngeal discomfort [Recovered/Resolved]
  - Drug hypersensitivity [Recovered/Resolved]
  - Tongue oedema [Recovered/Resolved]

NARRATIVE: CASE EVENT DATE: 20181017
